FAERS Safety Report 5224210-9 (Version None)
Quarter: 2007Q1

REPORT INFORMATION
  Report Type: 
  Country: None (occurrence: None)
  Receive Date: 20070130
  Receipt Date: 20070117
  Transmission Date: 20070707
  Serious: Yes (Other)
  Sender: FDA-Public Use
  Company Number: FR-ELI_LILLY_AND_COMPANY-FR200701000660

PATIENT
  Age: 69 Year
  Sex: Female

DRUGS (4)
  1. FORTEO [Suspect]
     Indication: OSTEOPOROSIS
     Dosage: 20 UG, DAILY (1/D)
     Route: 058
     Dates: start: 20061023
  2. SKENAN [Concomitant]
     Indication: PAIN
     Dosage: 10 MG, DAILY (1/D)
  3. ACETAMINOPHEN [Concomitant]
     Indication: PAIN
     Dosage: 500 MG, 2/D
  4. TANAKAN [Concomitant]
     Indication: POOR PERIPHERAL CIRCULATION

REACTIONS (7)
  - AORTIC VALVE INCOMPETENCE [None]
  - ASTHENIA [None]
  - CHEST DISCOMFORT [None]
  - DEPRESSION [None]
  - DYSPNOEA [None]
  - MITRAL VALVE INCOMPETENCE [None]
  - PALPITATIONS [None]
